FAERS Safety Report 7969411-1 (Version None)
Quarter: 2011Q4

REPORT INFORMATION
  Report Type: 
  Country: None (occurrence: None)
  Receive Date: 20111211
  Receipt Date: 20111128
  Transmission Date: 20120403
  Serious: Yes (Hospitalization)
  Sender: FDA-Public Use
  Company Number: JP-MYLANLABS-2011S1024781

PATIENT
  Age: 70 Year
  Sex: Female

DRUGS (6)
  1. PREDNISOLONE [Suspect]
     Indication: RHEUMATOID ARTHRITIS
     Route: 065
     Dates: start: 20050301
  2. INFLIXIMAB [Suspect]
     Indication: RHEUMATOID ARTHRITIS
     Route: 065
     Dates: start: 20051001
  3. PREDNISOLONE [Suspect]
     Dosage: 10 MG/DAY
     Route: 065
     Dates: start: 20050301
  4. METHOTREXATE [Suspect]
     Indication: RHEUMATOID ARTHRITIS
     Route: 065
     Dates: start: 20050601
  5. METHOTREXATE [Suspect]
     Dosage: 12.5 MG/WEEK
     Route: 065
     Dates: start: 20050601
  6. INFLIXIMAB [Suspect]
     Dosage: 200 MG/2 WEEKS
     Route: 065
     Dates: start: 20051001

REACTIONS (3)
  - MYCOBACTERIUM AVIUM COMPLEX INFECTION [None]
  - PLEURISY [None]
  - PNEUMOTHORAX [None]
